FAERS Safety Report 5099658-6 (Version None)
Quarter: 2006Q3

REPORT INFORMATION
  Report Type: 
  Country: None (occurrence: None)
  Receive Date: 20060908
  Receipt Date: 20060828
  Transmission Date: 20061208
  Serious: Yes (Other)
  Sender: FDA-Public Use
  Company Number: US-BRISTOL-MYERS SQUIBB COMPANY-13494679

PATIENT
  Sex: Male

DRUGS (6)
  1. DIDANOSINE [Suspect]
     Dates: start: 20020301
  2. TENOFOVIR [Suspect]
     Dates: start: 20020301
  3. LAMIVUDINE [Suspect]
     Dates: start: 20020301
  4. ABACAVIR [Suspect]
     Dates: start: 20020301
  5. LOPINAVIR + RITONAVIR [Suspect]
     Dates: start: 20020301
  6. ATORVASTATIN CALCIUM [Concomitant]
     Dates: start: 20020301

REACTIONS (3)
  - DIABETES MELLITUS NON-INSULIN-DEPENDENT [None]
  - HYPERTRIGLYCERIDAEMIA [None]
  - OSTEOPOROSIS [None]
